FAERS Safety Report 9628385 (Version 6)
Quarter: 2014Q3

REPORT INFORMATION
  Report Type: Report from Study
  Country: AR (occurrence: AR)
  Receive Date: 20131017
  Receipt Date: 20140925
  Transmission Date: 20150326
  Serious: Yes (Life-Threatening, Hospitalization, Other)
  Sender: FDA-Public Use
  Company Number: AR-ROCHE-1287344

PATIENT
  Age: 79 Year
  Sex: Female

DRUGS (61)
  1. CLONAZEPAM. [Concomitant]
     Active Substance: CLONAZEPAM
     Route: 048
     Dates: start: 201111
  2. PANTOPRAZOLE [Concomitant]
     Active Substance: PANTOPRAZOLE SODIUM
     Route: 048
     Dates: start: 20120612
  3. OMEPRAZOL [Concomitant]
     Active Substance: OMEPRAZOLE
     Route: 048
     Dates: start: 20131007, end: 20131010
  4. DEXAMETHASONE. [Concomitant]
     Active Substance: DEXAMETHASONE
     Route: 042
     Dates: start: 20131206, end: 20131206
  5. ALLOPURINOL. [Concomitant]
     Active Substance: ALLOPURINOL
     Indication: PROPHYLAXIS
     Route: 048
     Dates: start: 20131227, end: 20140102
  6. DOXORUBICIN [Suspect]
     Active Substance: DOXORUBICIN
     Indication: DIFFUSE LARGE B-CELL LYMPHOMA
     Route: 065
     Dates: start: 20130926, end: 20130926
  7. PREDNISONE. [Suspect]
     Active Substance: PREDNISONE
     Indication: DIFFUSE LARGE B-CELL LYMPHOMA
     Route: 065
     Dates: start: 20130926, end: 20130926
  8. CIPROFLOXACIN. [Concomitant]
     Active Substance: CIPROFLOXACIN
     Route: 042
     Dates: start: 20131102, end: 20131107
  9. AGOMELATINA [Concomitant]
     Route: 048
     Dates: start: 201304
  10. PANTOPRAZOLE [Concomitant]
     Active Substance: PANTOPRAZOLE SODIUM
     Route: 048
     Dates: start: 20140603
  11. ONDANSETRON [Concomitant]
     Active Substance: ONDANSETRON
     Route: 042
     Dates: start: 20131028
  12. OMEPRAZOL [Concomitant]
     Active Substance: OMEPRAZOLE
     Route: 048
     Dates: start: 20131029
  13. ENOXAPARINE SODIQUE [Concomitant]
     Route: 058
     Dates: start: 20131009, end: 20131010
  14. DOMPERIDONE/RANITIDINE [Concomitant]
     Route: 048
     Dates: start: 20131010, end: 20131010
  15. DOMPERIDONE/RANITIDINE [Concomitant]
     Route: 048
     Dates: start: 20140603
  16. FILGRASTIM [Concomitant]
     Active Substance: FILGRASTIM
     Route: 058
     Dates: start: 20140127, end: 20140130
  17. RITUXIMAB [Suspect]
     Active Substance: RITUXIMAB
     Indication: DIFFUSE LARGE B-CELL LYMPHOMA
     Dosage: DATE OF LAST DOSE PRIOR TO SAE: 26/SEP/2013
     Route: 058
     Dates: start: 20130926, end: 20130926
  18. PARACETAMOL [Concomitant]
     Active Substance: ACETAMINOPHEN
     Dosage: ONCE DAILY
     Route: 048
     Dates: start: 20140117, end: 20140117
  19. VASELINE PURE [Concomitant]
     Active Substance: PETROLATUM
     Route: 048
     Dates: start: 20130929, end: 20131002
  20. MAGNESIUM SULPHATE [Concomitant]
     Active Substance: MAGNESIUM SULFATE
     Route: 042
     Dates: start: 20131007, end: 20131010
  21. FILGRASTIM [Concomitant]
     Active Substance: FILGRASTIM
     Dosage: 300 INTERNATIONAL UNITS
     Route: 058
     Dates: start: 20131028, end: 20131029
  22. ATENOLOL. [Concomitant]
     Active Substance: ATENOLOL
     Route: 048
     Dates: start: 200506
  23. PARACETAMOL [Concomitant]
     Active Substance: ACETAMINOPHEN
     Route: 048
     Dates: start: 20130926, end: 20130926
  24. PARACETAMOL [Concomitant]
     Active Substance: ACETAMINOPHEN
     Route: 048
     Dates: start: 20131018, end: 20131018
  25. PARACETAMOL [Concomitant]
     Active Substance: ACETAMINOPHEN
     Route: 048
     Dates: start: 20131206, end: 20131206
  26. ONDANSETRON [Concomitant]
     Active Substance: ONDANSETRON
     Route: 042
     Dates: start: 20130926, end: 20130926
  27. ENOXAPARINE SODIQUE [Concomitant]
     Route: 058
     Dates: start: 20131102
  28. MAGNESIUM SULPHATE [Concomitant]
     Active Substance: MAGNESIUM SULFATE
     Route: 042
     Dates: start: 20131102, end: 20131102
  29. DEXAMETHASONE. [Concomitant]
     Active Substance: DEXAMETHASONE
     Route: 042
     Dates: start: 20131114, end: 20131114
  30. PARACETAMOL [Concomitant]
     Active Substance: ACETAMINOPHEN
     Route: 048
     Dates: start: 20131114, end: 20131114
  31. ONDANSETRON [Concomitant]
     Active Substance: ONDANSETRON
     Route: 048
     Dates: start: 20131021, end: 20131025
  32. ONDANSETRON [Concomitant]
     Active Substance: ONDANSETRON
     Route: 048
     Dates: start: 20131227, end: 20140130
  33. BENADRYL (ARGENTINA) [Concomitant]
     Route: 042
     Dates: start: 20140117, end: 20140117
  34. RED CELLS PACK [Concomitant]
     Dosage: 2 UNITS
     Route: 042
     Dates: start: 20131028, end: 20131028
  35. CYCLOPHOSPHAMIDE. [Suspect]
     Active Substance: CYCLOPHOSPHAMIDE
     Indication: DIFFUSE LARGE B-CELL LYMPHOMA
     Route: 065
     Dates: start: 20130926, end: 20130926
  36. VINCRISTIN [Suspect]
     Active Substance: VINCRISTINE
     Indication: DIFFUSE LARGE B-CELL LYMPHOMA
     Route: 065
     Dates: start: 20130926, end: 20130926
  37. PARACETAMOL [Concomitant]
     Active Substance: ACETAMINOPHEN
     Route: 048
     Dates: start: 20131028, end: 20131031
  38. ONDANSETRON [Concomitant]
     Active Substance: ONDANSETRON
     Route: 048
     Dates: start: 20131114
  39. DIPHENHYDRAMINE HYDROCHLORIDE. [Concomitant]
     Active Substance: DIPHENHYDRAMINE HYDROCHLORIDE
     Route: 042
     Dates: start: 20130926, end: 20130926
  40. BENADRYL (ARGENTINA) [Concomitant]
     Route: 042
     Dates: start: 20131114, end: 20131114
  41. LACTULON [Concomitant]
     Route: 065
     Dates: start: 20140127
  42. RITUXIMAB [Suspect]
     Active Substance: RITUXIMAB
     Indication: DIFFUSE LARGE B-CELL LYMPHOMA
     Route: 042
     Dates: start: 20130926
  43. DICLOFENAC [Concomitant]
     Active Substance: DICLOFENAC
     Route: 042
     Dates: start: 20131002, end: 20131002
  44. NEUTROMAX [Concomitant]
     Dosage: DOSE : 1 AMPULE
     Route: 058
     Dates: start: 20131007, end: 20131008
  45. BENADRYL (ARGENTINA) [Concomitant]
     Route: 042
     Dates: start: 20131018, end: 20131018
  46. BENADRYL (ARGENTINA) [Concomitant]
     Route: 042
     Dates: start: 20131206, end: 20131206
  47. AMIKACINE [Concomitant]
     Active Substance: AMIKACIN
     Route: 042
     Dates: start: 20131028, end: 20131106
  48. FILGRASTIM [Concomitant]
     Active Substance: FILGRASTIM
     Dosage: 150 INTERNATIONAL UNITS
     Route: 058
     Dates: start: 20131025, end: 20131028
  49. FILGRASTIM [Concomitant]
     Active Substance: FILGRASTIM
     Dosage: ONCE DAILY
     Route: 058
     Dates: start: 20131217, end: 20131220
  50. METOCLOPRAMIDE. [Concomitant]
     Active Substance: METOCLOPRAMIDE
     Dosage: 1 AMPOULE
     Route: 042
     Dates: start: 20131031, end: 20131104
  51. FLUCONAZOLE. [Concomitant]
     Active Substance: FLUCONAZOLE
     Route: 048
     Dates: start: 20131104
  52. LACTULON [Concomitant]
     Route: 048
     Dates: start: 20131104
  53. AMLODIPINE [Concomitant]
     Active Substance: AMLODIPINE BESYLATE
     Route: 048
     Dates: start: 20140627
  54. CEFTRIAXONE. [Concomitant]
     Active Substance: CEFTRIAXONE
     Route: 042
     Dates: start: 20131028, end: 20131106
  55. CLONAZEPAM. [Concomitant]
     Active Substance: CLONAZEPAM
     Route: 048
     Dates: start: 201111
  56. HEPARIN [Concomitant]
     Active Substance: HEPARIN SODIUM
     Route: 058
     Dates: start: 20131007, end: 20131007
  57. HEPARIN [Concomitant]
     Active Substance: HEPARIN SODIUM
     Route: 058
     Dates: start: 20131031, end: 20131031
  58. DEXAMETHASONE. [Concomitant]
     Active Substance: DEXAMETHASONE
     Route: 042
     Dates: start: 20131018, end: 20131018
  59. DEXAMETHASONE. [Concomitant]
     Active Substance: DEXAMETHASONE
     Route: 042
     Dates: start: 20140117, end: 20140117
  60. ALLOPURINOL. [Concomitant]
     Active Substance: ALLOPURINOL
     Route: 048
     Dates: start: 20131206, end: 20131213
  61. METHYLPREDNISOLONE [Concomitant]
     Active Substance: METHYLPREDNISOLONE
     Route: 061
     Dates: start: 20140411, end: 20140421

REACTIONS (2)
  - Cerebrovascular accident [Recovered/Resolved with Sequelae]
  - Hyponatraemia [Recovered/Resolved]

NARRATIVE: CASE EVENT DATE: 20131007
